FAERS Safety Report 11327746 (Version 1)
Quarter: 2015Q3

REPORT INFORMATION
  Report Type: Report from Study
  Country: BO (occurrence: BO)
  Receive Date: 20150731
  Receipt Date: 20150731
  Transmission Date: 20151125
  Serious: Yes (Death)
  Sender: FDA-Public Use
  Company Number: PHHY2014BO016766

PATIENT
  Sex: Male

DRUGS (1)
  1. GLIVEC [Suspect]
     Active Substance: IMATINIB MESYLATE
     Indication: ACUTE LYMPHOCYTIC LEUKAEMIA
     Dosage: 600 MG, QD
     Route: 048
     Dates: start: 20131111

REACTIONS (6)
  - Pulmonary oedema [Fatal]
  - Pleural effusion [Fatal]
  - Swelling [Unknown]
  - Infection [Unknown]
  - Feeling abnormal [Unknown]
  - Hypoproteinaemia [Fatal]
